FAERS Safety Report 21131454 (Version 1)
Quarter: 2022Q3

REPORT INFORMATION
  Report Type: Spontaneous
  Country: CN (occurrence: CN)
  Receive Date: 20220726
  Receipt Date: 20220726
  Transmission Date: 20221026
  Serious: Yes (Hospitalization, Other)
  Sender: FDA-Public Use
  Company Number: CN-009507513-2207CHN007657

PATIENT
  Sex: Male
  Weight: 89.3 kg

DRUGS (20)
  1. KEYTRUDA [Suspect]
     Active Substance: PEMBROLIZUMAB
     Indication: Lung neoplasm malignant
     Dosage: 200 MG D2
     Dates: start: 20210805, end: 20210805
  2. KEYTRUDA [Suspect]
     Active Substance: PEMBROLIZUMAB
     Dosage: 200 MG D2
     Dates: start: 20210827, end: 20210827
  3. KEYTRUDA [Suspect]
     Active Substance: PEMBROLIZUMAB
     Dosage: 200 MG
     Dates: start: 20210924, end: 20210924
  4. KEYTRUDA [Suspect]
     Active Substance: PEMBROLIZUMAB
     Dosage: 200 MG
     Dates: start: 20211017, end: 20211017
  5. KEYTRUDA [Suspect]
     Active Substance: PEMBROLIZUMAB
     Dosage: 200 MG
     Dates: start: 20211118, end: 20211118
  6. KEYTRUDA [Suspect]
     Active Substance: PEMBROLIZUMAB
     Dosage: 200 MG
     Dates: start: 20220109, end: 20220109
  7. KEYTRUDA [Suspect]
     Active Substance: PEMBROLIZUMAB
     Dosage: 200 MG
     Route: 041
     Dates: start: 20220615, end: 20220615
  8. CARBOPLATIN [Suspect]
     Active Substance: CARBOPLATIN
     Indication: Lung neoplasm malignant
     Dosage: 500MG D1
     Dates: start: 20210805, end: 20210805
  9. CARBOPLATIN [Suspect]
     Active Substance: CARBOPLATIN
     Dosage: 500MG D1
     Dates: start: 20210827, end: 20210827
  10. CARBOPLATIN [Suspect]
     Active Substance: CARBOPLATIN
     Dosage: 400MG D1
     Dates: start: 20210924, end: 20210924
  11. CARBOPLATIN [Suspect]
     Active Substance: CARBOPLATIN
     Dosage: 400MG D1
     Dates: start: 20211017, end: 20211017
  12. CARBOPLATIN [Suspect]
     Active Substance: CARBOPLATIN
     Dosage: 400MG D1
     Dates: start: 20211118, end: 20211118
  13. CARBOPLATIN [Suspect]
     Active Substance: CARBOPLATIN
     Dosage: 400MG D1
     Dates: start: 20220109, end: 20220109
  14. PACLITAXEL [Suspect]
     Active Substance: PACLITAXEL
     Indication: Lung neoplasm malignant
     Dosage: 500MG D1
     Dates: start: 20210805, end: 20210805
  15. PACLITAXEL [Suspect]
     Active Substance: PACLITAXEL
     Dosage: 480MG D1
     Dates: start: 20210827, end: 20210827
  16. PACLITAXEL [Suspect]
     Active Substance: PACLITAXEL
     Dosage: 400MG D1
     Dates: start: 20210924, end: 20210924
  17. PACLITAXEL [Suspect]
     Active Substance: PACLITAXEL
     Dosage: 400MG D1
     Dates: start: 20211017, end: 20211017
  18. PACLITAXEL [Suspect]
     Active Substance: PACLITAXEL
     Dosage: 400MG D1
     Dates: start: 20211118, end: 20211118
  19. PACLITAXEL [Suspect]
     Active Substance: PACLITAXEL
     Dosage: 400MG D1
     Dates: start: 20220109, end: 20220109
  20. PACLITAXEL [Suspect]
     Active Substance: PACLITAXEL
     Dosage: 400MG D1
     Route: 041
     Dates: start: 20220615, end: 20220615

REACTIONS (13)
  - Myelosuppression [Unknown]
  - Malignant neoplasm progression [Unknown]
  - Drug eruption [Recovering/Resolving]
  - Hypoaesthesia [Recovered/Resolved]
  - Gout [Recovered/Resolved]
  - Skin exfoliation [Unknown]
  - Blister [Unknown]
  - Oedema peripheral [Unknown]
  - Rash [Recovered/Resolved]
  - Product use issue [Unknown]
  - Product use issue [Unknown]
  - Product use issue [Unknown]
  - Product use issue [Unknown]

NARRATIVE: CASE EVENT DATE: 20210101
